FAERS Safety Report 23662913 (Version 1)
Quarter: 2024Q1

REPORT INFORMATION
  Report Type: Spontaneous
  Country: IT (occurrence: IT)
  Receive Date: 20240322
  Receipt Date: 20240322
  Transmission Date: 20240409
  Serious: Yes (Other)
  Sender: FDA-Public Use
  Company Number: IT-MINISAL02-960477

PATIENT
  Age: 65 Year
  Sex: Female

DRUGS (4)
  1. IRINOTECAN [Suspect]
     Active Substance: IRINOTECAN
     Indication: Colon cancer stage IV
     Dosage: UNK
     Route: 065
     Dates: start: 20230822
  2. OXALIPLATIN [Suspect]
     Active Substance: OXALIPLATIN
     Indication: Colon cancer stage IV
     Dosage: UNK
     Route: 065
     Dates: start: 20230822
  3. BEVACIZUMAB [Suspect]
     Active Substance: BEVACIZUMAB
     Indication: Colon cancer stage IV
     Dosage: UNK
     Route: 065
     Dates: start: 20230822
  4. LANSOPRAZOLE [Concomitant]
     Active Substance: LANSOPRAZOLE
     Indication: Product used for unknown indication
     Dosage: UNK
     Route: 065

REACTIONS (2)
  - Febrile neutropenia [Unknown]
  - Anaemia [Unknown]

NARRATIVE: CASE EVENT DATE: 20230902
